FAERS Safety Report 5833939-0 (Version None)
Quarter: 2008Q3

REPORT INFORMATION
  Report Type: 
  Country: None (occurrence: None)
  Receive Date: 20080805
  Receipt Date: 20080731
  Transmission Date: 20090109
  Serious: Yes (Hospitalization)
  Sender: FDA-Public Use
  Company Number: B0531796A

PATIENT
  Sex: Female

DRUGS (3)
  1. CEFUROXIME [Suspect]
     Dosage: 500MG PER DAY
     Route: 048
     Dates: start: 20080701, end: 20080701
  2. THEOPHYLLINE [Concomitant]
  3. PREDNISOLONE [Concomitant]

REACTIONS (2)
  - CIRCULATORY COLLAPSE [None]
  - RESPIRATORY FAILURE [None]
